FAERS Safety Report 19065143 (Version 1)
Quarter: 2021Q1

REPORT INFORMATION
  Report Type: Spontaneous
  Country: FI (occurrence: FI)
  Receive Date: 20210327
  Receipt Date: 20210327
  Transmission Date: 20210420
  Serious: Yes (Death)
  Sender: FDA-Public Use
  Company Number: FI-ACCORD-220715

PATIENT
  Age: 64 Year
  Sex: Male

DRUGS (2)
  1. IRINOTECAN ACCORD [Suspect]
     Active Substance: IRINOTECAN
     Indication: RECTAL CANCER METASTATIC
     Dosage: 470, MG, X1
     Route: 042
     Dates: start: 20210122, end: 20210122
  2. AVASTIN [Suspect]
     Active Substance: BEVACIZUMAB
     Indication: RECTAL CANCER METASTATIC
     Dosage: 580,MG,X1
     Route: 042
     Dates: start: 20210122, end: 20210122

REACTIONS (3)
  - Neutropenic sepsis [Fatal]
  - Escherichia sepsis [Fatal]
  - Pyelonephritis [Fatal]

NARRATIVE: CASE EVENT DATE: 20210128
